FAERS Safety Report 12014925 (Version 3)
Quarter: 2019Q2

REPORT INFORMATION
  Report Type: Spontaneous
  Country: US (occurrence: US)
  Receive Date: 20160205
  Receipt Date: 20190610
  Transmission Date: 20190711
  Serious: Yes (Disabling, Other)
  Sender: FDA-Public Use
  Company Number: US-ENDO PHARMACEUTICALS INC.-2016-000632

PATIENT
  Age: 38 Year
  Sex: Male
  Weight: 91.61 kg

DRUGS (9)
  1. INVOKANA [Concomitant]
     Active Substance: CANAGLIFLOZIN
     Indication: DIABETES MELLITUS
     Route: 065
  2. ATORVASTATIN [Concomitant]
     Active Substance: ATORVASTATIN
     Indication: BLOOD CHOLESTEROL
     Route: 048
  3. XIAFLEX [Suspect]
     Active Substance: COLLAGENASE CLOSTRIDIUM HISTOLYTICUM
     Dosage: 0.58 MG, UNKNOWN
     Route: 017
     Dates: start: 20161207
  4. METFORMIN HCL [Concomitant]
     Active Substance: METFORMIN HYDROCHLORIDE
     Indication: DIABETES MELLITUS
     Dosage: 1000 MG, BID
     Route: 048
     Dates: start: 2009
  5. CINNAMON. [Concomitant]
     Active Substance: CINNAMON
     Indication: PRODUCT USED FOR UNKNOWN INDICATION
     Dosage: 4 TABLETS IN THE MORNING AND 4 TABLETS AT NIGHT.
     Route: 065
  6. BABY ASPIRIN [Concomitant]
     Active Substance: ASPIRIN
     Indication: BLOOD PRESSURE ABNORMAL
     Dosage: 80 MG, ONCE A DAY EVERY MORNING
     Route: 065
     Dates: start: 2009
  7. XIAFLEX [Suspect]
     Active Substance: COLLAGENASE CLOSTRIDIUM HISTOLYTICUM
     Indication: PEYRONIE^S DISEASE
     Dosage: 0.58 MG, UNKNOWN CYCLES (3 OR 4 INJECTIONS), SPORADIC
     Route: 026
     Dates: start: 20150921, end: 20161214
  8. LISINOPRIL. [Concomitant]
     Active Substance: LISINOPRIL
     Indication: BLOOD PRESSURE ABNORMAL
     Dosage: 40 MG, DAILY
     Route: 048
     Dates: start: 2009
  9. FISH OIL [Concomitant]
     Active Substance: FISH OIL
     Indication: PRODUCT USED FOR UNKNOWN INDICATION
     Dosage: 2 IN THE MORNING AND 2 IN THE EVENING
     Route: 065

REACTIONS (9)
  - Injection site pain [Recovered/Resolved]
  - Soft tissue inflammation [Recovered/Resolved]
  - Penile pain [Recovered/Resolved]
  - Penile erythema [Recovered/Resolved]
  - Painful erection [Recovered/Resolved]
  - Product administration error [Recovered/Resolved]
  - Penile swelling [Recovered/Resolved]
  - Inappropriate schedule of product administration [Recovered/Resolved]
  - Drug ineffective [Recovered/Resolved]

NARRATIVE: CASE EVENT DATE: 20150921
